FAERS Safety Report 9691819 (Version 1)
Quarter: 2013Q4

REPORT INFORMATION
  Report Type: Report from Study
  Country: TR (occurrence: TR)
  Receive Date: 20131115
  Receipt Date: 20131115
  Transmission Date: 20140711
  Serious: Yes (Other)
  Sender: FDA-Public Use
  Company Number: TR-US-EMD SERONO, INC.-7248981

PATIENT
  Sex: Female
  Weight: 58 kg

DRUGS (6)
  1. REBIF [Suspect]
     Indication: MULTIPLE SCLEROSIS
     Route: 058
     Dates: start: 201012
  2. LANSOPRAZOLE [Suspect]
     Indication: GASTRIC DISORDER
     Route: 048
  3. PROPRANOLOL [Suspect]
     Indication: TREMOR
     Route: 048
     Dates: start: 2010
  4. CIPRALEX                           /01588501/ [Concomitant]
     Indication: DEPRESSION
     Route: 048
     Dates: start: 2010
  5. OSTEOCARE                          /01424301/ [Concomitant]
     Indication: VITAMIN SUPPLEMENTATION
     Route: 048
  6. EUTHYROX [Concomitant]
     Indication: HYPOTHYROIDISM
     Route: 048
     Dates: start: 201106

REACTIONS (4)
  - Epilepsy [Not Recovered/Not Resolved]
  - Oedema [Recovered/Resolved]
  - Injection site reaction [Not Recovered/Not Resolved]
  - Injection site bruising [Not Recovered/Not Resolved]
